FAERS Safety Report 16669207 (Version 1)
Quarter: 2019Q3

REPORT INFORMATION
  Report Type: Spontaneous
  Country: TH (occurrence: TH)
  Receive Date: 20190805
  Receipt Date: 20190805
  Transmission Date: 20191004
  Serious: Yes (Other)
  Sender: FDA-Public Use
  Company Number: TH-BAYER-2019-142108

PATIENT
  Age: 56 Year
  Sex: Female

DRUGS (2)
  1. STIVARGA [Suspect]
     Active Substance: REGORAFENIB
     Indication: METASTASES TO LUNG
  2. STIVARGA [Suspect]
     Active Substance: REGORAFENIB
     Indication: COLORECTAL CANCER STAGE IV
     Dosage: UNK
     Dates: start: 20170206, end: 20180823

REACTIONS (2)
  - Metastases to lung [None]
  - Lymphadenopathy mediastinal [None]

NARRATIVE: CASE EVENT DATE: 20180825
